FAERS Safety Report 6476466-2 (Version None)
Quarter: 2009Q4

REPORT INFORMATION
  Report Type: 
  Country: None (occurrence: None)
  Receive Date: 20091207
  Receipt Date: 20091202
  Transmission Date: 20100525
  Serious: Yes (Disabling, Other)
  Sender: FDA-Public Use
  Company Number: BR-ELI_LILLY_AND_COMPANY-BR200912000725

PATIENT
  Sex: Female
  Weight: 53 kg

DRUGS (2)
  1. HUMALOG [Suspect]
     Indication: TYPE 1 DIABETES MELLITUS
     Dosage: 3 IU, 2/D
     Route: 058
     Dates: start: 20070101, end: 20090101
  2. ENALAPRIL [Concomitant]
     Indication: HYPERTENSION
     Dosage: 5 MG, 2/D
     Route: 065

REACTIONS (7)
  - ASTHENIA [None]
  - BLINDNESS UNILATERAL [None]
  - FLUID RETENTION [None]
  - HAEMORRHAGE [None]
  - HYPERHIDROSIS [None]
  - HYPOGLYCAEMIA [None]
  - OCULAR VASCULAR DISORDER [None]
